FAERS Safety Report 21140817 (Version 1)
Quarter: 2022Q3

REPORT INFORMATION
  Report Type: Spontaneous
  Country: US (occurrence: US)
  Receive Date: 20220728
  Receipt Date: 20220728
  Transmission Date: 20221027
  Serious: No
  Sender: FDA-Public Use
  Company Number: US-TEVA-2022-US-2055235

PATIENT
  Age: 77 Year
  Sex: Female
  Weight: 45.36 kg

DRUGS (3)
  1. ARMODAFINIL [Suspect]
     Active Substance: ARMODAFINIL
     Indication: Somnolence
     Dosage: 200 MILLIGRAM DAILY; DAILY IN THE MORNING ON AN EMPTY STOMACH
     Route: 065
     Dates: start: 20220621
  2. ARMODAFINIL [Suspect]
     Active Substance: ARMODAFINIL
     Indication: Sleep apnoea syndrome
     Dosage: 100 MILLIGRAM DAILY; BREAKS TABLET IN HALF TO TAKE A DOSE OF 100 MG
     Route: 065
  3. ARMODAFINIL [Suspect]
     Active Substance: ARMODAFINIL
     Indication: Somnolence

REACTIONS (8)
  - Drug ineffective [Unknown]
  - Feeling abnormal [Unknown]
  - Head titubation [Unknown]
  - Impaired driving ability [Unknown]
  - Product availability issue [Unknown]
  - Disturbance in attention [Unknown]
  - Intentional product use issue [Unknown]
  - Wrong technique in product usage process [Unknown]

NARRATIVE: CASE EVENT DATE: 20220622
